FAERS Safety Report 11518671 (Version 1)
Quarter: 2015Q3

REPORT INFORMATION
  Report Type: Spontaneous
  Country: US (occurrence: US)
  Receive Date: 20150917
  Receipt Date: 20150917
  Transmission Date: 20151125
  Serious: Yes (Hospitalization)
  Sender: FDA-Public Use
  Company Number: US-INCYTE CORPORATION-2015IN004543

PATIENT
  Sex: Female

DRUGS (10)
  1. TRIAMTERENE. [Concomitant]
     Active Substance: TRIAMTERENE
     Dosage: UNK
  2. PRILOSEC [Concomitant]
     Active Substance: OMEPRAZOLE MAGNESIUM
     Dosage: UNK
  3. FENOFIBRATE. [Concomitant]
     Active Substance: FENOFIBRATE
     Dosage: UNK
  4. ALIGN [Concomitant]
     Active Substance: BIFIDOBACTERIUM LONGUM SUBSP. INFANTIS
  5. CALCIUM [Concomitant]
     Active Substance: CALCIUM
     Dosage: UNK
  6. JAKAFI [Suspect]
     Active Substance: RUXOLITINIB
     Dosage: 5 MG, BID
     Route: 048
     Dates: start: 201402
  7. TOBRAMYCIN. [Concomitant]
     Active Substance: TOBRAMYCIN
     Dosage: UNK
  8. LEVOTHYROXINE. [Concomitant]
     Active Substance: LEVOTHYROXINE
     Dosage: UNK
  9. BACTRIM [Concomitant]
     Active Substance: SULFAMETHOXAZOLE\TRIMETHOPRIM
     Dosage: UNK
  10. URODIL PHYTO [Concomitant]
     Dosage: UNK

REACTIONS (1)
  - Clostridium difficile infection [Unknown]
